FAERS Safety Report 9613402 (Version 2)
Quarter: 2013Q4

REPORT INFORMATION
  Report Type: Spontaneous
  Country: US (occurrence: US)
  Receive Date: 20131010
  Receipt Date: 20131108
  Transmission Date: 20140711
  Serious: Yes (Hospitalization)
  Sender: FDA-Public Use
  Company Number: US-B.I. PHARMACEUTICALS,INC./RIDGEFIELD-2013-BI-31611BP

PATIENT
  Age: 64 Year
  Sex: Female
  Weight: 77.11 kg

DRUGS (10)
  1. PRADAXA [Suspect]
     Indication: ATRIAL FIBRILLATION
     Dosage: 300 MG
     Dates: start: 20110822, end: 20111004
  2. NEXIUM [Concomitant]
     Dosage: 40 MG
  3. GLUCOPHAGE [Concomitant]
  4. SYNTHROID [Concomitant]
     Dosage: 50 MCG
  5. REGLAN [Concomitant]
     Dosage: 5 MG
  6. CRESTOR [Concomitant]
     Dosage: 40 MG
  7. TOPROL [Concomitant]
     Dosage: 100 MG
  8. ALBUTEROL PUFFER [Concomitant]
  9. ASPIRIN [Concomitant]
     Dosage: 81 MG
  10. TYLENOL [Concomitant]

REACTIONS (4)
  - Gastrointestinal haemorrhage [Unknown]
  - Microcytic anaemia [Unknown]
  - International normalised ratio increased [Unknown]
  - Activated partial thromboplastin time prolonged [Unknown]
